FAERS Safety Report 4406731-1 (Version None)
Quarter: 2004Q3

REPORT INFORMATION
  Report Type: 
  Country: None (occurrence: None)
  Receive Date: 20040715
  Receipt Date: 20040705
  Transmission Date: 20050211
  Serious: Yes (Hospitalization)
  Sender: FDA-Public Use
  Company Number: 2004AP03517

PATIENT
  Age: 38 Year
  Sex: Female

DRUGS (6)
  1. ZOLADEX [Suspect]
     Indication: BREAST CANCER
     Dosage: 3.6 MG Q4WK SQ
     Dates: start: 20031117, end: 20040501
  2. NOLVADEX [Suspect]
     Indication: BREAST CANCER
     Dosage: 20 MG DAILY PO
     Route: 048
     Dates: start: 20031101, end: 20040524
  3. CYCLOPHOSPHAMIDE [Concomitant]
  4. METHOTREXATE [Concomitant]
  5. FLUOROURACIL [Concomitant]
  6. RADIATION THERAPY [Concomitant]

REACTIONS (1)
  - CRYPTOGENIC ORGANIZING PNEUMONIA [None]
